FAERS Safety Report 24218638 (Version 2)
Quarter: 2024Q4

REPORT INFORMATION
  Report Type: Report from Study
  Country: CA (occurrence: CA)
  Receive Date: 20240816
  Receipt Date: 20241001
  Transmission Date: 20250115
  Serious: Yes (Hospitalization, Other)
  Sender: TAKEDA
  Company Number: CA-TAKEDA-2023TUS015123

PATIENT
  Sex: Female
  Weight: 59 kg

DRUGS (30)
  1. HUMAN IMMUNOGLOBULIN G [Suspect]
     Active Substance: HUMAN IMMUNOGLOBULIN G
     Indication: Primary immunodeficiency syndrome
     Dosage: 9 GRAM, 1/WEEK
     Route: 050
     Dates: start: 20200316
  2. HUMAN IMMUNOGLOBULIN G [Suspect]
     Active Substance: HUMAN IMMUNOGLOBULIN G
     Indication: Immunodeficiency common variable
     Dosage: 14 GRAM, 1/WEEK
     Route: 065
  3. HUMAN IMMUNOGLOBULIN G [Suspect]
     Active Substance: HUMAN IMMUNOGLOBULIN G
     Dosage: 14 GRAM, 1/WEEK
     Route: 058
  4. HUMAN IMMUNOGLOBULIN G [Suspect]
     Active Substance: HUMAN IMMUNOGLOBULIN G
     Dosage: 16 GRAM, 1/WEEK
     Route: 058
  5. GABAPENTIN [Concomitant]
     Active Substance: GABAPENTIN
     Dosage: 1600 MILLIGRAM, TID
     Route: 065
  6. TRAMADOL HYDROCHLORIDE [Concomitant]
     Active Substance: TRAMADOL HYDROCHLORIDE
     Dosage: 300 MILLIGRAM, QD
     Route: 065
  7. NABILONE [Concomitant]
     Active Substance: NABILONE
     Dosage: 5 MILLIGRAM
     Route: 065
  8. ZOPICLONE [Concomitant]
     Active Substance: ZOPICLONE
     Dosage: UNK UNK, QD
     Route: 065
  9. SEROQUEL [Concomitant]
     Active Substance: QUETIAPINE FUMARATE
     Dosage: 50 MILLIGRAM
     Route: 065
  10. ATIVAN [Concomitant]
     Active Substance: LORAZEPAM
     Dosage: UNK
     Route: 065
  11. MONTELUKAST SODIUM [Concomitant]
     Active Substance: MONTELUKAST SODIUM
     Dosage: 10 MILLIGRAM
     Route: 065
  12. VENTOLIN [Concomitant]
     Active Substance: ALBUTEROL SULFATE
     Dosage: UNK UNK, QD
     Route: 065
  13. SPIRIVA [Concomitant]
     Active Substance: TIOTROPIUM BROMIDE MONOHYDRATE
     Dosage: UNK
     Route: 065
  14. FLONASE [Concomitant]
     Active Substance: FLUTICASONE PROPIONATE
     Dosage: UNK
     Route: 065
  15. MYRBETRIQ [Concomitant]
     Active Substance: MIRABEGRON
     Dosage: 50 MILLIGRAM
     Route: 065
  16. CELECO [Concomitant]
     Dosage: UNK
     Route: 065
  17. NUCALA [Concomitant]
     Active Substance: MEPOLIZUMAB
     Dosage: UNK
  18. AZITHROMYCIN [Concomitant]
     Active Substance: AZITHROMYCIN
     Dosage: UNK
  19. Reactine [Concomitant]
     Dosage: UNK
  20. LORAZEPAM [Concomitant]
     Active Substance: LORAZEPAM
     Dosage: UNK
  21. TRAMADOL [Concomitant]
     Active Substance: TRAMADOL
     Dosage: UNK
  22. CELECOXIB [Concomitant]
     Active Substance: CELECOXIB
     Dosage: UNK
  23. MIRTAZAPINE [Concomitant]
     Active Substance: MIRTAZAPINE
     Dosage: 30 MILLIGRAM
     Route: 065
  24. QUETIAPINE [Concomitant]
     Active Substance: QUETIAPINE
     Dosage: UNK
  25. SINGULAIR [Concomitant]
     Active Substance: MONTELUKAST SODIUM
     Dosage: UNK
  26. ASPIRIN [Concomitant]
     Active Substance: ASPIRIN
     Dosage: UNK
  27. ALVESCO [Concomitant]
     Active Substance: CICLESONIDE
     Dosage: UNK
  28. ZOPICLONE [Concomitant]
     Active Substance: ZOPICLONE
     Dosage: UNK
  29. CITALOPRAM [Concomitant]
     Active Substance: CITALOPRAM
  30. BREO ELLIPTA [Concomitant]
     Active Substance: FLUTICASONE FUROATE\VILANTEROL TRIFENATATE
     Dosage: 1 DOSAGE FORM, QD
     Route: 065

REACTIONS (10)
  - Lung neoplasm malignant [Unknown]
  - Viral upper respiratory tract infection [Unknown]
  - Blood immunoglobulin G decreased [Unknown]
  - Weight increased [Unknown]
  - Infection [Unknown]
  - Product dose omission issue [Unknown]
  - Rhinorrhoea [Unknown]
  - Oxygen saturation decreased [Unknown]
  - Cough [Unknown]
  - Dyspnoea [Unknown]
